FAERS Safety Report 21988484 (Version 4)
Quarter: 2024Q2

REPORT INFORMATION
  Report Type: Spontaneous
  Country: US (occurrence: US)
  Receive Date: 20230214
  Receipt Date: 20240502
  Transmission Date: 20240716
  Serious: No
  Sender: FDA-Public Use
  Company Number: US-ABBVIE-4307002

PATIENT
  Age: 78 Year
  Sex: Male

DRUGS (7)
  1. LUPRON [Suspect]
     Active Substance: LEUPROLIDE ACETATE
     Indication: Product used for unknown indication
     Dosage: SHOT
     Route: 065
  2. XTANDI [Suspect]
     Active Substance: ENZALUTAMIDE
     Indication: Prostate cancer metastatic
     Dosage: FORM STRENGTH: 160 MILLIGRAM
     Route: 048
     Dates: start: 20221227
  3. XTANDI [Suspect]
     Active Substance: ENZALUTAMIDE
     Indication: Prostate cancer metastatic
     Dosage: FORM STRENGTH: 120 MILLIGRAM
     Route: 048
     Dates: start: 20221227
  4. XTANDI [Suspect]
     Active Substance: ENZALUTAMIDE
     Indication: Prostate cancer metastatic
     Dosage: DISCONTINUED IN 2022?FORM STRENGTH: 120 MILLIGRAM
     Route: 048
     Dates: start: 20220715
  5. XTANDI [Suspect]
     Active Substance: ENZALUTAMIDE
     Indication: Prostate cancer metastatic
     Dosage: DISCONTINUED IN 2022?FORM STRENGTH: 120 MILLIGRAM
     Route: 048
     Dates: start: 20221122
  6. XTANDI [Suspect]
     Active Substance: ENZALUTAMIDE
     Indication: Prostate cancer metastatic
     Dosage: FORM STRENGTH: 120 MILLIGRAM
     Route: 048
     Dates: start: 20230115, end: 20230126
  7. XTANDI [Suspect]
     Active Substance: ENZALUTAMIDE
     Indication: Prostate cancer metastatic
     Dosage: FORM STRENGTH: 120 MILLIGRAM
     Route: 048
     Dates: start: 20230209

REACTIONS (4)
  - Hyperhidrosis [Not Recovered/Not Resolved]
  - Dizziness [Recovered/Resolved]
  - Back pain [Unknown]
  - Product availability issue [Unknown]

NARRATIVE: CASE EVENT DATE: 20221227
